FAERS Safety Report 9834443 (Version 6)
Quarter: 2014Q2

REPORT INFORMATION
  Report Type: Spontaneous
  Country: DE (occurrence: DE)
  Receive Date: 20140122
  Receipt Date: 20140529
  Transmission Date: 20141212
  Serious: Yes (Hospitalization)
  Sender: FDA-Public Use
  Company Number: PHHY2014DE004202

PATIENT
  Age: 57 Year
  Sex: Female
  Weight: 88 kg

DRUGS (7)
  1. SIGNIFOR [Suspect]
     Indication: CUSHING^S SYNDROME
     Dosage: 300 UG, BID
     Route: 058
     Dates: start: 20130720, end: 20131023
  2. SIGNIFOR [Suspect]
     Indication: OFF LABEL USE
     Dosage: 600 UG, BID
     Route: 058
     Dates: start: 20131024, end: 20131202
  3. SIGNIFOR [Suspect]
     Dosage: 900 UG, BID
     Route: 058
     Dates: start: 20140527
  4. RAMIPRIL COMP [Concomitant]
     Indication: HYPERTENSION
     Dosage: 1 DF, QD
     Route: 048
  5. TORASEMIDE [Concomitant]
     Indication: CORONARY ARTERY DISEASE
     Dosage: 0.5 DF, QD
     Route: 048
  6. ESOMEPRAZOLE [Concomitant]
     Indication: GASTRITIS
     Dosage: 1 DF, QD
     Route: 048
  7. DEKRISTOL [Concomitant]
     Route: 048

REACTIONS (3)
  - Diabetes mellitus inadequate control [Recovering/Resolving]
  - Hyperglycaemia [Recovered/Resolved]
  - Glycosylated haemoglobin increased [Unknown]
